FAERS Safety Report 6522678-9 (Version None)
Quarter: 2009Q4

REPORT INFORMATION
  Report Type: 
  Country: None (occurrence: None)
  Receive Date: 20091224
  Receipt Date: 20091209
  Transmission Date: 20100525
  Serious: Yes (Hospitalization)
  Sender: FDA-Public Use
  Company Number: TRP_06601_2009

PATIENT
  Age: 46 Year
  Sex: Male
  Weight: 55 kg

DRUGS (4)
  1. RIBAVIRIN [Suspect]
     Indication: HEPATITIS C
     Dosage: (800 MG, DAILY) ; (200 MG, DAILY)
     Dates: start: 20020101, end: 20020601
  2. RIBAVIRIN [Suspect]
     Indication: HEPATITIS C
     Dosage: (800 MG, DAILY) ; (200 MG, DAILY)
     Dates: start: 20020601
  3. INTERFERON ALFA-2B (INTERFERON ALPHA-2B) [Suspect]
     Indication: HEPATITIS C
     Dosage: (6 MILLION UNITS/DAY) ; (6 MILLION UNITS)
     Dates: start: 20020101, end: 20020601
  4. INTERFERON ALFA-2B (INTERFERON ALPHA-2B) [Suspect]
     Indication: HEPATITIS C
     Dosage: (6 MILLION UNITS/DAY) ; (6 MILLION UNITS)
     Dates: start: 20020601

REACTIONS (14)
  - ANGIOTENSIN CONVERTING ENZYME INCREASED [None]
  - BONE MARROW FAILURE [None]
  - CUTANEOUS SARCOIDOSIS [None]
  - DECREASED APPETITE [None]
  - DYSGEUSIA [None]
  - DYSPNOEA [None]
  - HEART RATE INCREASED [None]
  - HILAR LYMPHADENOPATHY [None]
  - LYMPHADENOPATHY MEDIASTINAL [None]
  - RESPIRATORY DISORDER [None]
  - SARCOIDOSIS [None]
  - SKIN LESION [None]
  - TELANGIECTASIA [None]
  - WHITE BLOOD CELL COUNT DECREASED [None]
